FAERS Safety Report 20795868 (Version 2)
Quarter: 2023Q1

REPORT INFORMATION
  Report Type: Report from Study
  Country: US (occurrence: US)
  Receive Date: 20220506
  Receipt Date: 20230123
  Transmission Date: 20230418
  Serious: No
  Sender: FDA-Public Use
  Company Number: US-PFIZER INC-2021245134

PATIENT
  Sex: Female

DRUGS (2)
  1. LYRICA [Suspect]
     Active Substance: PREGABALIN
     Indication: Lumbosacral radiculopathy
     Dosage: 200 MG 2X/DAY (1 CAPSULE BY MOUTH 2 (TWO) TIMES DAILY FOR 90 DAYS)
     Route: 048
  2. LYRICA [Suspect]
     Active Substance: PREGABALIN
     Indication: Neuralgia
     Dosage: 100 MILLIGRAM, BID (100MG TWICE A DAY )
     Route: 065

REACTIONS (1)
  - Feeling abnormal [Unknown]
